FAERS Safety Report 10719704 (Version 2)
Quarter: 2015Q1

REPORT INFORMATION
  Report Type: Spontaneous
  Country: US (occurrence: US)
  Receive Date: 20150119
  Receipt Date: 20150119
  Transmission Date: 20150721
  Serious: No
  Sender: FDA-Public Use
  Company Number: US-UNITED THERAPEUTICS-UTC-045226

PATIENT
  Age: 70 Year
  Sex: Male
  Weight: 108.86 kg

DRUGS (3)
  1. TRACLEER [Concomitant]
     Active Substance: BOSENTAN\BOSENTAN MONOHYDRATE
  2. REMODULIN [Suspect]
     Active Substance: TREPROSTINIL
     Dosage: 0.063 UG/KG/MIN
     Route: 041
     Dates: start: 20130320
  3. SILDENAFIL CITRATE. [Concomitant]
     Active Substance: SILDENAFIL CITRATE
     Indication: PRODUCT USED FOR UNKNOWN INDICATION

REACTIONS (1)
  - Herpes zoster [Unknown]

NARRATIVE: CASE EVENT DATE: 201402
